FAERS Safety Report 26139560 (Version 1)
Quarter: 2025Q4

REPORT INFORMATION
  Report Type: Report from Study
  Country: US (occurrence: None)
  Receive Date: 20251210
  Receipt Date: 20251210
  Transmission Date: 20260118
  Serious: Yes (Other)
  Sender: UCB
  Company Number: US-UCBSA-2025077261

PATIENT
  Age: 70 Year

DRUGS (1)
  1. BIMEKIZUMAB [Suspect]
     Active Substance: BIMEKIZUMAB
     Indication: Product used for unknown indication
     Dosage: 320 MILLIGRAM

REACTIONS (4)
  - Seizure [Unknown]
  - Decreased immune responsiveness [Unknown]
  - Rash [Unknown]
  - Therapeutic product effect incomplete [Unknown]
